FAERS Safety Report 4867115-5 (Version None)
Quarter: 2005Q4

REPORT INFORMATION
  Report Type: 
  Country: None (occurrence: None)
  Receive Date: 20051222
  Receipt Date: 20051219
  Transmission Date: 20060501
  Serious: Yes (Hospitalization)
  Sender: FDA-Public Use
  Company Number: 234270K05USA

PATIENT
  Age: 39 Year
  Sex: Female

DRUGS (3)
  1. REBIF [Suspect]
     Indication: MULTIPLE SCLEROSIS
     Dosage: 44 MCG, 3 IN 1 WEEKS, SUBCUTANEOUS
     Route: 058
     Dates: start: 20030809
  2. DESYREL [Concomitant]
  3. ZANAFLEX [Concomitant]

REACTIONS (9)
  - ASTHENIA [None]
  - INJECTION SITE ERYTHEMA [None]
  - INJECTION SITE INFECTION [None]
  - INJECTION SITE PAIN [None]
  - OEDEMA PERIPHERAL [None]
  - PYREXIA [None]
  - SKIN DISCOLOURATION [None]
  - SKIN ULCER [None]
  - THROMBOSIS [None]
